FAERS Safety Report 8574160 (Version 2)
Quarter: 2013Q2

REPORT INFORMATION
  Report Type: Spontaneous
  Country: US (occurrence: US)
  Receive Date: 20120522
  Receipt Date: 20130613
  Transmission Date: 20140414
  Serious: Yes (Life-Threatening)
  Sender: FDA-Public Use
  Company Number: CHPA2012US010628

PATIENT
  Sex: Female

DRUGS (2)
  1. PERDIEM OVERNIGHT RELIEF PILLS [Suspect]
     Dosage: UNK UNK, QD
     Route: 048
  2. PERDIEM FIBER [Suspect]
     Dosage: UNK, UNK
     Route: 048

REACTIONS (1)
  - Feeling abnormal [Unknown]
